FAERS Safety Report 7496375-X (Version None)
Quarter: 2011Q2

REPORT INFORMATION
  Report Type: 
  Country: None (occurrence: None)
  Receive Date: 20110513
  Receipt Date: 20110503
  Transmission Date: 20111010
  Serious: Yes (Other)
  Sender: FDA-Public Use
  Company Number: 2011SP020195

PATIENT
  Age: 16 Year
  Sex: Female
  Weight: 54.4316 kg

DRUGS (2)
  1. IMPLANON [Suspect]
     Indication: MENSTRUAL CYCLE MANAGEMENT
     Dosage: 1 DF;SBDE
     Route: 059
     Dates: start: 20100305
  2. IMPLANON [Suspect]
     Indication: CONTRACEPTION
     Dosage: 1 DF;SBDE
     Route: 059
     Dates: start: 20100305

REACTIONS (3)
  - DEPRESSION [None]
  - SUICIDAL IDEATION [None]
  - BLOOD IRON DECREASED [None]
